FAERS Safety Report 7545783-7 (Version None)
Quarter: 2011Q2

REPORT INFORMATION
  Report Type: 
  Country: None (occurrence: None)
  Receive Date: 20110524
  Receipt Date: 20110310
  Transmission Date: 20111010
  Serious: No
  Sender: FDA-Public Use
  Company Number: 027167

PATIENT
  Sex: Female
  Weight: 49.8957 kg

DRUGS (11)
  1. CALCIUM CARBONATE [Concomitant]
  2. CELEXA [Concomitant]
  3. VIBRAMYCIN /00055702/ [Concomitant]
  4. SODIUM SULAMYD [Concomitant]
  5. OMEPRAZOLE [Concomitant]
  6. VITAMIN D [Concomitant]
  7. VITAMIN B12 /00091801/ [Concomitant]
  8. ERYTHROMYCIN [Concomitant]
  9. ZITHROMAX [Concomitant]
  10. CIMZIA [Suspect]
     Indication: CROHN'S DISEASE
     Dosage: (LYPHOLIZED 2 SHOTS SUBCUTANEOUS) ; (200 MG 1X/MONTH, 2 SHOTS SUBCUTANEOUS)
     Route: 058
     Dates: start: 20090801
  11. CIMZIA [Suspect]
     Indication: CROHN'S DISEASE
     Dosage: (LYPHOLIZED 2 SHOTS SUBCUTANEOUS) ; (200 MG 1X/MONTH, 2 SHOTS SUBCUTANEOUS)
     Route: 058
     Dates: start: 20091101

REACTIONS (2)
  - EAR DISCOMFORT [None]
  - LARYNGITIS [None]
